FAERS Safety Report 6798046-1 (Version None)
Quarter: 2010Q2

REPORT INFORMATION
  Report Type: 
  Country: None (occurrence: None)
  Receive Date: 20100523
  Receipt Date: 20100609
  Transmission Date: 20101027
  Serious: Yes (Hospitalization)
  Sender: FDA-Public Use
  Company Number: UTC-001164

PATIENT
  Age: 66 Year
  Sex: Female
  Weight: 90.3 kg

DRUGS (14)
  1. TYVASO [Suspect]
     Indication: PULMONARY HYPERTENSION
     Dosage: 72 MCG (18 MCG, 4 IN 1 D), INHALATION
     Route: 055
     Dates: start: 20100322, end: 20100604
  2. DARVOCET (APOREX) (- TABLETS) [Concomitant]
  3. DIAZEPAM [Concomitant]
  4. SERTRALINE [Concomitant]
  5. COUMADIN [Concomitant]
  6. COZAAR [Concomitant]
  7. REVATIO [Concomitant]
  8. LIPITOR [Concomitant]
  9. GABAPENTIN [Concomitant]
  10. FLOVENT (FLUTICASONE PROPIONATE) (AEROSOL FOR INHALATION) [Concomitant]
  11. LEVOTHYROXINE (LEVOTHYROXINE) (TABLETS) [Concomitant]
  12. TOPROL-XL [Concomitant]
  13. METAMUCIL (PLANTAGO OVATA) [Concomitant]
  14. PROTONIX [Concomitant]

REACTIONS (8)
  - BRONCHITIS [None]
  - DIABETES MELLITUS [None]
  - DIZZINESS [None]
  - HEADACHE [None]
  - HYPOTENSION [None]
  - INCORRECT DOSE ADMINISTERED [None]
  - PNEUMONIA [None]
  - THROAT IRRITATION [None]
